FAERS Safety Report 24570017 (Version 5)
Quarter: 2025Q1

REPORT INFORMATION
  Report Type: Report from Study
  Country: CA (occurrence: CA)
  Receive Date: 20241031
  Receipt Date: 20250306
  Transmission Date: 20250409
  Serious: Yes (Other)
  Sender: DAIICHI
  Company Number: CA-AstraZeneca-CH-00731223A

PATIENT
  Sex: Female

DRUGS (12)
  1. ENHERTU [Suspect]
     Active Substance: FAM-TRASTUZUMAB DERUXTECAN-NXKI
     Indication: HER2 positive breast cancer
     Dosage: 370 MG, ONCE EVERY 3 WK
     Route: 042
     Dates: start: 20220630
  2. ENHERTU [Suspect]
     Active Substance: FAM-TRASTUZUMAB DERUXTECAN-NXKI
     Dosage: 340 MG, ONCE EVERY 3 WK
     Route: 042
     Dates: start: 20220630
  3. PANTO [NICOTINAMIDE;PANTETHINE;PYRIDOXINE HYDROCHLORIDE;RIBOFLAVIN;SOD [Concomitant]
     Indication: Product used for unknown indication
     Route: 065
  4. HYDROMORPHONE [Concomitant]
     Active Substance: HYDROMORPHONE
     Indication: Product used for unknown indication
     Dosage: 4.5 MILLIGRAM, BID
     Route: 065
  5. DILAUDID [Concomitant]
     Active Substance: HYDROMORPHONE HYDROCHLORIDE
     Indication: Product used for unknown indication
     Route: 065
  6. LYRICA [Concomitant]
     Active Substance: PREGABALIN
     Indication: Product used for unknown indication
     Route: 065
  7. LYRICA [Concomitant]
     Active Substance: PREGABALIN
     Route: 065
  8. TYLENOL [Concomitant]
     Active Substance: ACETAMINOPHEN
     Indication: Product used for unknown indication
     Route: 065
  9. CHOLECALCIFEROL [Concomitant]
     Active Substance: CHOLECALCIFEROL
     Indication: Product used for unknown indication
     Route: 065
  10. LEVECETAM [Concomitant]
     Indication: Product used for unknown indication
     Dosage: 1000 MILLIGRAM, BID
     Route: 065
  11. SENOKOT [Concomitant]
     Active Substance: SENNOSIDES
     Indication: Product used for unknown indication
     Route: 065
  12. PEG [PEGINTERFERON ALFA-2B] [Concomitant]
     Indication: Product used for unknown indication
     Route: 065

REACTIONS (12)
  - Cerebral atrophy [Unknown]
  - Laboratory test abnormal [Unknown]
  - Red blood cell count [Unknown]
  - Haemoglobin [Unknown]
  - Haematocrit [Unknown]
  - Red cell distribution width increased [Unknown]
  - Lymphocyte count [Unknown]
  - Immature granulocyte count [Unknown]
  - Blood chloride [Unknown]
  - Blood lactate dehydrogenase [Unknown]
  - Blood calcium [Unknown]
  - Blood albumin [Unknown]
